FAERS Safety Report 11290880 (Version 1)
Quarter: 2015Q3

REPORT INFORMATION
  Report Type: Spontaneous
  Country: US (occurrence: US)
  Receive Date: 20150722
  Receipt Date: 20150722
  Transmission Date: 20151125
  Serious: No
  Sender: FDA-Public Use
  Company Number: PHEH2015US013709

PATIENT
  Sex: Female

DRUGS (1)
  1. EXELON PATCH [Suspect]
     Active Substance: RIVASTIGMINE
     Indication: PRODUCT USED FOR UNKNOWN INDICATION
     Dosage: 9.5 OT, UNK
     Route: 062

REACTIONS (5)
  - Application site erythema [Unknown]
  - Application site irritation [Unknown]
  - Skin reaction [Unknown]
  - Application site perspiration [Recovered/Resolved]
  - Application site pruritus [Recovered/Resolved]
